FAERS Safety Report 16164405 (Version 1)
Quarter: 2019Q2

REPORT INFORMATION
  Report Type: Spontaneous
  Country: US (occurrence: US)
  Receive Date: 20190405
  Receipt Date: 20190405
  Transmission Date: 20190711
  Serious: No
  Sender: FDA-Public Use
  Company Number: US-BAYER-2019-057819

PATIENT
  Age: 40 Year
  Sex: Male

DRUGS (1)
  1. ALIQOPA [Suspect]
     Active Substance: COPANLISIB
     Indication: B-CELL LYMPHOMA
     Dosage: 60 MG, QD DAYS 1,8,15
     Route: 042
     Dates: start: 201902, end: 201903

REACTIONS (4)
  - Myalgia [Not Recovered/Not Resolved]
  - Pre-existing condition improved [None]
  - Arthralgia [Not Recovered/Not Resolved]
  - Visual impairment [Not Recovered/Not Resolved]
